FAERS Safety Report 8573376-1 (Version None)
Quarter: 2012Q3

REPORT INFORMATION
  Report Type: 
  Country: None (occurrence: None)
  Receive Date: 20120806
  Receipt Date: 20120731
  Transmission Date: 20120928
  Serious: Yes (Hospitalization)
  Sender: FDA-Public Use
  Company Number: DE-PFIZER INC-2012092084

PATIENT
  Age: 59 Year
  Sex: Male
  Weight: 97.1 kg

DRUGS (12)
  1. ATORVASTATIN CALCIUM [Concomitant]
     Indication: HYPERLIPIDAEMIA
     Dosage: 10 MG, 1X/DAY
     Route: 048
     Dates: start: 20100118
  2. SOMATROPIN [Suspect]
     Indication: HYPOPITUITARISM
     Dosage: 0.1 UNK, 7 INJECTIONS PER WEEK
     Dates: start: 20101016, end: 20101021
  3. SOMATROPIN [Suspect]
     Dosage: 0.2 UNK, 7 INJECTIONS PER WEEK
     Dates: start: 20101022, end: 20101028
  4. SOMATROPIN [Suspect]
     Dosage: 0.3 UNK, 7INJECTIONS PER WEEK
     Dates: start: 20101029, end: 20110412
  5. SOMATROPIN [Suspect]
     Dosage: 0.2 UNK, 7 INJECTIONS PER WEEK
     Dates: start: 20110413, end: 20120222
  6. TESTOSTERONE [Concomitant]
     Indication: BLOOD FOLLICLE STIMULATING HORMONE DECREASED
  7. METFORMIN [Concomitant]
     Indication: DIABETES MELLITUS
     Dosage: 850 MG, 2X/DAY
     Route: 048
     Dates: start: 20100118
  8. RASILEZ [Concomitant]
     Indication: ESSENTIAL HYPERTENSION
     Dosage: 150 MG, 1X/DAY
     Route: 048
     Dates: start: 20100118
  9. TESTOSTERONE [Concomitant]
     Indication: BLOOD LUTEINISING HORMONE DECREASED
     Dosage: UNK
     Route: 062
     Dates: start: 20100407
  10. ALLOPURINOL [Concomitant]
     Indication: TOXICITY TO VARIOUS AGENTS
     Dosage: 150 MG, 1X/DAY
     Route: 048
     Dates: start: 20100118
  11. SOMATROPIN [Suspect]
     Dosage: 0.1 UNK, 7 INJECTIONS PER WEEK
     Dates: start: 20120223
  12. TESTOSTERONE [Concomitant]
     Indication: HYPOGONADISM

REACTIONS (1)
  - EYE DISORDER [None]
